FAERS Safety Report 6286647-9 (Version None)
Quarter: 2009Q3

REPORT INFORMATION
  Report Type: 
  Country: None (occurrence: None)
  Receive Date: 20090716
  Receipt Date: 20090513
  Transmission Date: 20100115
  Serious: Yes (Death, Hospitalization)
  Sender: FDA-Public Use
  Company Number: 2009BI014490

PATIENT
  Age: 54 Year
  Sex: Male

DRUGS (3)
  1. AVONEX [Suspect]
     Indication: MULTIPLE SCLEROSIS
  2. CON MEDS [Concomitant]
  3. PREV MEDS [Concomitant]

REACTIONS (3)
  - DYSPNOEA [None]
  - INFECTION [None]
  - TRACHEAL HAEMORRHAGE [None]
